FAERS Safety Report 17801486 (Version 1)
Quarter: 2020Q2

REPORT INFORMATION
  Report Type: Spontaneous
  Country: US (occurrence: US)
  Receive Date: 20200518
  Receipt Date: 20200518
  Transmission Date: 20200714
  Serious: Yes (Other)
  Sender: FDA-Public Use
  Company Number: None

PATIENT
  Age: 17 Year
  Sex: Male

DRUGS (1)
  1. CUVITRU [Suspect]
     Active Substance: HUMAN IMMUNOGLOBULIN G
     Indication: IMMUNODEFICIENCY COMMON VARIABLE
     Dosage: ?          OTHER STRENGTH:4GM/20ML;OTHER FREQUENCY:EVERY 2 WEEKS;?
     Route: 058
     Dates: start: 2017

REACTIONS (7)
  - Dyspnoea [None]
  - Flushing [None]
  - Infusion related reaction [None]
  - Pharyngeal paraesthesia [None]
  - Paraesthesia oral [None]
  - Chills [None]
  - Heart rate increased [None]

NARRATIVE: CASE EVENT DATE: 20200506
